FAERS Safety Report 7149110-9 (Version None)
Quarter: 2010Q4

REPORT INFORMATION
  Report Type: 
  Country: None (occurrence: None)
  Receive Date: 20101209
  Receipt Date: 20101130
  Transmission Date: 20110411
  Serious: Yes (Hospitalization)
  Sender: FDA-Public Use
  Company Number: US-MERCK-1012USA00197

PATIENT
  Age: 61 Year
  Sex: Female

DRUGS (4)
  1. COZAAR [Suspect]
     Indication: BLOOD PRESSURE
     Route: 048
     Dates: start: 20101107, end: 20101112
  2. COZAAR [Suspect]
     Route: 048
  3. LOSARTAN POTASSIUM [Suspect]
     Route: 065
  4. SYNTHROID [Concomitant]
     Route: 065

REACTIONS (2)
  - BLOOD PRESSURE INCREASED [None]
  - DRUG INEFFECTIVE [None]
